FAERS Safety Report 9506385 (Version 2)
Quarter: 2014Q1

REPORT INFORMATION
  Report Type: Spontaneous
  Country: US (occurrence: None)
  Receive Date: 20130301
  Receipt Date: 20140304
  Transmission Date: 20141002
  Serious: Yes (Hospitalization, Other)
  Sender: FDA-Public Use
  Company Number: RB-37741-2012

PATIENT
  Sex: Female

DRUGS (3)
  1. SUBOXONE [Suspect]
     Indication: DRUG DEPENDENCE
     Dosage: (2 MG QD  TRAMSPLACENTAL
     Route: 064
     Dates: start: 20110420, end: 2011
  2. BUPRENORPHINE [Suspect]
     Indication: DRUG DEPENDENCE
     Dosage: TAPERED DOSE FROM 2 GM TO 1 MG DAILY
     Route: 064
     Dates: start: 201110, end: 20120129
  3. SUBOXONE [Suspect]
     Indication: DRUG DEPENDENCE
     Route: 064
     Dates: start: 2011, end: 201110

REACTIONS (4)
  - Exposure during pregnancy [None]
  - Foetal exposure during pregnancy [None]
  - Exposure during breast feeding [None]
  - No adverse event [None]
